FAERS Safety Report 18875657 (Version 1)
Quarter: 2021Q1

REPORT INFORMATION
  Report Type: Spontaneous
  Country: BR (occurrence: BR)
  Receive Date: 20210210
  Receipt Date: 20210210
  Transmission Date: 20210420
  Serious: Yes (Hospitalization)
  Sender: FDA-Public Use
  Company Number: BR-BAYER-2021-058061

PATIENT

DRUGS (2)
  1. FLANAX 24H [NAPROXEN SODIUM] [Suspect]
     Active Substance: NAPROXEN SODIUM
  2. ETANERCEPT [Suspect]
     Active Substance: ETANERCEPT

REACTIONS (1)
  - Gastrointestinal disorder [None]

NARRATIVE: CASE EVENT DATE: 201903
